FAERS Safety Report 23789781 (Version 2)
Quarter: 2024Q2

REPORT INFORMATION
  Report Type: Spontaneous
  Country: IT (occurrence: IT)
  Receive Date: 20240426
  Receipt Date: 20240629
  Transmission Date: 20240716
  Serious: Yes (Death)
  Sender: FDA-Public Use
  Company Number: IT-GENMAB-2024-01427

PATIENT
  Age: 59 Year
  Sex: Male
  Weight: 80 kg

DRUGS (2)
  1. EPCORITAMAB [Suspect]
     Active Substance: EPCORITAMAB
     Indication: Product used for unknown indication
     Dosage: 0.16 MG (DAY 1 CYCLE 1)
     Route: 058
     Dates: start: 20240402
  2. EPCORITAMAB [Suspect]
     Active Substance: EPCORITAMAB
     Dosage: LAST ADMIN DATE WAS APR 2024; 0.8 MG (DAY 8 CYCLE 1)
     Route: 058
     Dates: start: 20240410, end: 202404

REACTIONS (1)
  - Disease progression [Fatal]
